FAERS Safety Report 23331581 (Version 4)
Quarter: 2024Q1

REPORT INFORMATION
  Report Type: Report from Study
  Country: US (occurrence: US)
  Receive Date: 20231222
  Receipt Date: 20240222
  Transmission Date: 20240409
  Serious: Yes (Hospitalization, Other)
  Sender: FDA-Public Use
  Company Number: US-HBP-2023US030231

PATIENT
  Age: 82 Year
  Sex: Female

DRUGS (10)
  1. VALCHLOR [Suspect]
     Active Substance: MECHLORETHAMINE
     Indication: Cutaneous T-cell lymphoma
     Dosage: THIN FILM, QD
     Route: 061
     Dates: end: 202309
  2. VALCHLOR [Suspect]
     Active Substance: MECHLORETHAMINE
     Dosage: THIN FILM, QD
     Route: 061
     Dates: start: 20230918, end: 202311
  3. VALCHLOR [Suspect]
     Active Substance: MECHLORETHAMINE
     Dosage: THIN FILM, QD
     Route: 061
     Dates: start: 20231124
  4. VALCHLOR [Suspect]
     Active Substance: MECHLORETHAMINE
     Dosage: THIN FILM, QD
     Route: 061
  5. VALCHLOR [Suspect]
     Active Substance: MECHLORETHAMINE
     Dosage: THIN FILM, QD
     Route: 061
  6. OLMESARTAN MEDOXOMIL [Concomitant]
     Active Substance: OLMESARTAN MEDOXOMIL
     Dosage: UNK, UNKNOWN
  7. FENOFIBRATE [Concomitant]
     Active Substance: FENOFIBRATE
     Dosage: UNK, UNKNOWN
  8. TRIAMCINOLONE ACETONIDE [Concomitant]
     Active Substance: TRIAMCINOLONE ACETONIDE
     Dosage: UNK, UNKNOWN
     Route: 065
     Dates: start: 20190606
  9. BENADRYL ITCH STOPPING CREAM [Concomitant]
     Dosage: UNK, UNKNOWN
     Route: 065
     Dates: start: 20190606
  10. ATORVASTATIN CALCIUM [Concomitant]
     Active Substance: ATORVASTATIN CALCIUM
     Indication: Blood pressure abnormal
     Dosage: UNK, UNKNOWN

REACTIONS (13)
  - Bacterial infection [Unknown]
  - COVID-19 [Unknown]
  - Pneumonia [Unknown]
  - Cutaneous T-cell lymphoma [Unknown]
  - Condition aggravated [Unknown]
  - Application site haemorrhage [Unknown]
  - Intentional dose omission [Unknown]
  - Skin lesion [Unknown]
  - Hypertension [Unknown]
  - Application site pruritus [Unknown]
  - Application site rash [Unknown]
  - Erythema [Recovering/Resolving]
  - Dry skin [Recovering/Resolving]

NARRATIVE: CASE EVENT DATE: 20231101
